FAERS Safety Report 24905385 (Version 1)
Quarter: 2025Q1

REPORT INFORMATION
  Report Type: Spontaneous
  Country: US (occurrence: US)
  Receive Date: 20250130
  Receipt Date: 20250130
  Transmission Date: 20250409
  Serious: No
  Sender: Tarsus Pharmaceuticals
  Company Number: US-TARSUS PHARMACEUTICALS-TSP-US-2025-000030

PATIENT
  Age: 71 Year
  Sex: Female

DRUGS (1)
  1. XDEMVY [Suspect]
     Active Substance: LOTILANER
     Indication: Product used for unknown indication
     Dosage: ONE DROP INTO BOTH EYES TWICE A DAY
     Route: 047

REACTIONS (3)
  - Swelling face [Unknown]
  - Pharyngeal swelling [Unknown]
  - Dyspnoea [Unknown]
